FAERS Safety Report 20751086 (Version 2)
Quarter: 2022Q2

REPORT INFORMATION
  Report Type: Report from Study
  Country: US (occurrence: US)
  Receive Date: 20220426
  Receipt Date: 20220427
  Transmission Date: 20220721
  Serious: Yes (Hospitalization)
  Sender: FDA-Public Use
  Company Number: US-ABBVIE-22K-163-4370510-00

PATIENT
  Age: 75 Year
  Sex: Female

DRUGS (7)
  1. SYNTHROID [Suspect]
     Active Substance: LEVOTHYROXINE SODIUM
     Indication: Hypothyroidism
     Dosage: 1 TABLET FROM MONDAY TO SATURDAY. HALF TABLET ON SUNDAYS
     Route: 048
     Dates: start: 2004, end: 20220409
  2. CO-Q10+VITAMIN D3 [Concomitant]
     Indication: Supplementation therapy
  3. BIOTIN [Concomitant]
     Active Substance: BIOTIN
     Indication: Supplementation therapy
  4. VITAMIN D3 [Concomitant]
     Active Substance: CHOLECALCIFEROL
     Indication: Supplementation therapy
  5. VITAMIN A [Concomitant]
     Active Substance: VITAMIN A
     Indication: Supplementation therapy
  6. VITAMIN E [Concomitant]
     Active Substance: .ALPHA.-TOCOPHEROL
     Indication: Supplementation therapy
  7. MELATONIN [Concomitant]
     Active Substance: MELATONIN
     Indication: Product used for unknown indication

REACTIONS (4)
  - Depression [Unknown]
  - Depressed mood [Not Recovered/Not Resolved]
  - Suicide attempt [Unknown]
  - Intentional overdose [Unknown]

NARRATIVE: CASE EVENT DATE: 20220301
